FAERS Safety Report 7655664-6 (Version None)
Quarter: 2011Q3

REPORT INFORMATION
  Report Type: 
  Country: None (occurrence: None)
  Receive Date: 20110801
  Receipt Date: 20110715
  Transmission Date: 20111222
  Serious: Yes (Hospitalization, Other)
  Sender: FDA-Public Use
  Company Number: 2011MA008946

PATIENT
  Age: 32 Year
  Sex: Male

DRUGS (4)
  1. TRIHEXYPHENIDYL HCL [Suspect]
     Indication: EXTRAPYRAMIDAL DISORDER
  2. PHENOBARBITAL TABLETS USP, 10 MG (PUREPAC) (PHENOBARBITAL) [Suspect]
     Indication: CONVULSION
  3. LEVOMEPROMAZINE (LEVOMEPROMAZINE) [Suspect]
     Indication: PSYCHOTIC DISORDER
  4. HALOPERIDOL [Suspect]
     Indication: PSYCHOTIC DISORDER

REACTIONS (5)
  - PSEUDOHYPOPARATHYROIDISM [None]
  - CONVULSION [None]
  - ALCOHOL USE [None]
  - FAHR'S DISEASE [None]
  - CONDITION AGGRAVATED [None]
